FAERS Safety Report 10757738 (Version 1)
Quarter: 2015Q1

REPORT INFORMATION
  Report Type: Spontaneous
  Country: IE (occurrence: IE)
  Receive Date: 20150203
  Receipt Date: 20150203
  Transmission Date: 20150721
  Serious: Yes (Hospitalization)
  Sender: FDA-Public Use
  Company Number: IE-BRISTOL-MYERS SQUIBB COMPANY-BMS-2015-004919

PATIENT
  Age: 58 Year
  Sex: Male

DRUGS (1)
  1. IPILIMUMAB [Suspect]
     Active Substance: IPILIMUMAB
     Indication: METASTATIC MALIGNANT MELANOMA
     Dosage: 3 MG/KG, Q3WK:CYCLE 2
     Route: 065
     Dates: start: 201206

REACTIONS (3)
  - Paraplegia [Not Recovered/Not Resolved]
  - Myelitis [Not Recovered/Not Resolved]
  - Colitis [Recovered/Resolved]
